FAERS Safety Report 5973785-0 (Version None)
Quarter: 2008Q4

REPORT INFORMATION
  Report Type: 
  Country: None (occurrence: None)
  Receive Date: 20081201
  Receipt Date: 20080120
  Transmission Date: 20090506
  Serious: No
  Sender: FDA-Public Use
  Company Number: US-AMGEN-KDL261561

PATIENT
  Sex: Female

DRUGS (2)
  1. ENBREL [Suspect]
     Indication: RHEUMATOID ARTHRITIS
     Route: 058
     Dates: start: 20071001
  2. IMURAN [Concomitant]
     Route: 048
     Dates: start: 20040101

REACTIONS (2)
  - LYMPHADENOPATHY [None]
  - NASOPHARYNGITIS [None]
